FAERS Safety Report 8096493-1 (Version None)
Quarter: 2012Q1

REPORT INFORMATION
  Report Type: 
  Country: None (occurrence: None)
  Receive Date: 20120129
  Receipt Date: 20111220
  Transmission Date: 20120608
  Serious: No
  Sender: FDA-Public Use
  Company Number: US-ABBOTT-11P-163-0885445-00

PATIENT
  Sex: Female

DRUGS (3)
  1. HUMIRA [Suspect]
     Indication: PULMONARY SARCOIDOSIS
     Route: 058
     Dates: start: 20110901
  2. HUMIRA [Suspect]
     Dates: start: 20111001
  3. HUMIRA [Suspect]

REACTIONS (5)
  - COUGH [None]
  - URINARY TRACT INFECTION [None]
  - NASOPHARYNGITIS [None]
  - RHINORRHOEA [None]
  - UPPER RESPIRATORY TRACT INFECTION [None]
